FAERS Safety Report 5881945-2 (Version None)
Quarter: 2008Q3

REPORT INFORMATION
  Report Type: 
  Country: None (occurrence: None)
  Receive Date: 20080912
  Receipt Date: 20080715
  Transmission Date: 20090109
  Serious: No
  Sender: FDA-Public Use
  Company Number: US-ABBOTT-08P-163-0463228-00

PATIENT
  Sex: Female
  Weight: 91.708 kg

DRUGS (7)
  1. HUMIRA [Suspect]
     Indication: RHEUMATOID ARTHRITIS
     Route: 050
     Dates: start: 20070101
  2. HUMIRA [Suspect]
     Route: 050
     Dates: start: 20080501
  3. ARTHROTEC [Concomitant]
     Indication: RHEUMATOID ARTHRITIS
     Dosage: 50 MG DAILY
     Route: 048
  4. LEVOTHYROXINE SODIUM [Concomitant]
     Indication: THYROIDECTOMY
     Dosage: 0.15 MCG DAILY
     Route: 048
     Dates: start: 19720101
  5. LIOTHYRONINE SODIUM [Concomitant]
     Indication: TRI-IODOTHYRONINE
     Dosage: 0.5 MG DAILY
     Route: 048
     Dates: start: 20070101
  6. ESCITALOPRAM OXALATE [Concomitant]
     Indication: DEPRESSION
     Dosage: 10 MG DAILY
     Route: 048
     Dates: start: 20030101
  7. NARINE [Concomitant]
     Indication: ALLERGIC SINUSITIS
     Route: 048
     Dates: start: 20060101

REACTIONS (1)
  - WEIGHT INCREASED [None]
